FAERS Safety Report 10265112 (Version 1)
Quarter: 2014Q2

REPORT INFORMATION
  Report Type: Spontaneous
  Country: CH (occurrence: CH)
  Receive Date: 20140627
  Receipt Date: 20140627
  Transmission Date: 20141212
  Serious: Yes (Life-Threatening, Hospitalization)
  Sender: FDA-Public Use
  Company Number: CH-ASTRAZENECA-2014SE46969

PATIENT
  Age: 62 Year
  Sex: Male

DRUGS (4)
  1. QUETIAPINE [Suspect]
     Indication: BIPOLAR DISORDER
     Route: 048
  2. FLECAINIDE [Suspect]
  3. LAMOTRIGINE [Suspect]
  4. ANTI VITAMIN K [Concomitant]

REACTIONS (3)
  - Suicide attempt [Recovered/Resolved]
  - Mental status changes [Recovered/Resolved]
  - Fatigue [Recovered/Resolved]
